FAERS Safety Report 22302874 (Version 1)
Quarter: 2023Q2

REPORT INFORMATION
  Report Type: Spontaneous
  Country: US (occurrence: US)
  Receive Date: 20230510
  Receipt Date: 20230510
  Transmission Date: 20230721
  Serious: Yes (Hospitalization)
  Sender: FDA-Public Use
  Company Number: US-BRISTOL-MYERS SQUIBB COMPANY-2023-064109

PATIENT
  Age: 41 Year
  Sex: Male
  Weight: 112.4 kg

DRUGS (1)
  1. POMALYST [Suspect]
     Active Substance: POMALIDOMIDE
     Indication: Plasma cell myeloma
     Dosage: FREQ: 3 WEEKS ON, 1 WEEK OFF
     Route: 048

REACTIONS (1)
  - Hospitalisation [Unknown]
